FAERS Safety Report 7271627-7 (Version None)
Quarter: 2011Q1

REPORT INFORMATION
  Report Type: 
  Country: None (occurrence: None)
  Receive Date: 20110203
  Receipt Date: 20110125
  Transmission Date: 20110831
  Serious: Yes (Other)
  Sender: FDA-Public Use
  Company Number: KR-JNJFOC-20110107782

PATIENT
  Age: 8 Decade
  Sex: Male

DRUGS (6)
  1. DURAGESIC-100 [Suspect]
     Indication: PAIN MANAGEMENT
     Dosage: 2X25MCG/HR/PATCH + 12.5MCG/HR/PATCH
     Route: 062
  2. MYPOL NOS [Concomitant]
     Route: 065
  3. ANTIBIOTICS [Suspect]
     Indication: ILL-DEFINED DISORDER
     Route: 065
  4. DURAGESIC-100 [Suspect]
     Dosage: 50MCG/HR/PATCH + 12.5MCG/HR/PATCH
     Route: 062
  5. DURAGESIC-100 [Suspect]
     Route: 062
  6. UNKNOWN MEDICATION [Concomitant]
     Indication: CONSTIPATION
     Route: 065

REACTIONS (6)
  - GLOSSODYNIA [None]
  - INAPPROPRIATE SCHEDULE OF DRUG ADMINISTRATION [None]
  - CONSTIPATION [None]
  - COGNITIVE DISORDER [None]
  - MENTAL STATUS CHANGES [None]
  - JUDGEMENT IMPAIRED [None]
